FAERS Safety Report 6266371-9 (Version None)
Quarter: 2009Q3

REPORT INFORMATION
  Report Type: 
  Country: None (occurrence: None)
  Receive Date: 20090713
  Receipt Date: 20090710
  Transmission Date: 20100115
  Serious: Yes (Death)
  Sender: FDA-Public Use
  Company Number: ES-WYE-G02835008

PATIENT
  Sex: Male

DRUGS (1)
  1. TORISEL [Suspect]
     Indication: NEOPLASM
     Route: 042
     Dates: start: 20080101

REACTIONS (2)
  - INTESTINAL PERFORATION [None]
  - SEPTIC SHOCK [None]
